FAERS Safety Report 11515660 (Version 1)
Quarter: 2015Q3

REPORT INFORMATION
  Report Type: Report from Study
  Country: CZ (occurrence: CZ)
  Receive Date: 20150916
  Receipt Date: 20150916
  Transmission Date: 20151125
  Serious: Yes (Death)
  Sender: FDA-Public Use
  Company Number: PHHY2015CZ110925

PATIENT
  Age: 55 Year
  Sex: Female

DRUGS (2)
  1. EXEMESTANE. [Concomitant]
     Active Substance: EXEMESTANE
     Indication: PRODUCT USED FOR UNKNOWN INDICATION
     Route: 065
  2. AFINITOR [Suspect]
     Active Substance: EVEROLIMUS
     Indication: BREAST CANCER
     Dosage: 10 MG, QD
     Route: 065
     Dates: start: 20150211, end: 20150311

REACTIONS (4)
  - General physical health deterioration [Fatal]
  - Pneumonitis [Fatal]
  - Respiratory failure [Fatal]
  - Metastases to lung [Fatal]

NARRATIVE: CASE EVENT DATE: 20150311
